FAERS Safety Report 6487978-X (Version None)
Quarter: 2009Q4

REPORT INFORMATION
  Report Type: 
  Country: None (occurrence: None)
  Receive Date: 20091209
  Receipt Date: 20091209
  Transmission Date: 20100525
  Serious: Yes (Hospitalization)
  Sender: FDA-Public Use
  Company Number: None

PATIENT
  Age: 64 Year
  Sex: Male
  Weight: 146.14 kg

DRUGS (1)
  1. CIPROFLOXACIN [Suspect]
     Dosage: 750 MG QWEEK PO
     Route: 048
     Dates: start: 20091113, end: 20091123

REACTIONS (1)
  - CLOSTRIDIAL INFECTION [None]
